FAERS Safety Report 4824883-6 (Version None)
Quarter: 2005Q4

REPORT INFORMATION
  Report Type: 
  Country: None (occurrence: None)
  Receive Date: 20051110
  Receipt Date: 20051103
  Transmission Date: 20060501
  Serious: Yes (Hospitalization)
  Sender: FDA-Public Use
  Company Number: DEPFP-S-20050028

PATIENT
  Age: 65 Year
  Sex: Male

DRUGS (5)
  1. NAVELBINE [Suspect]
     Indication: BRONCHIAL CARCINOMA
     Route: 042
     Dates: start: 20050801, end: 20050919
  2. ALIMTA [Concomitant]
     Dates: start: 20050504, end: 20050530
  3. MCP [Concomitant]
  4. DURAGESIC-100 [Concomitant]
  5. NOVALGIN [Concomitant]

REACTIONS (4)
  - HAEMORRHAGIC DISORDER [None]
  - NAUSEA [None]
  - PETECHIAE [None]
  - PURPURA [None]
